FAERS Safety Report 19153720 (Version 1)
Quarter: 2021Q2

REPORT INFORMATION
  Report Type: Spontaneous
  Country: IT (occurrence: IT)
  Receive Date: 20210419
  Receipt Date: 20210419
  Transmission Date: 20210717
  Serious: Yes (Other)
  Sender: FDA-Public Use
  Company Number: IT-MYLANLABS-2021M1022466

PATIENT
  Age: 59 Year
  Sex: Male

DRUGS (2)
  1. HYDROXYCHLOROQUINE [Interacting]
     Active Substance: HYDROXYCHLOROQUINE
     Indication: COVID-19
     Dosage: UNK
     Route: 065
  2. AZITHROMYCIN ANHYDROUS. [Suspect]
     Active Substance: AZITHROMYCIN ANHYDROUS
     Indication: COVID-19
     Dosage: UNK UNK, UNKNOWN
     Route: 065

REACTIONS (9)
  - Epistaxis [Recovered/Resolved]
  - Cerebrovascular accident [Recovered/Resolved]
  - Leukocytosis [Unknown]
  - Aphasia [Recovering/Resolving]
  - Off label use [Unknown]
  - Motor dysfunction [Recovering/Resolving]
  - Product use in unapproved indication [Unknown]
  - Drug interaction [Unknown]
  - Endocarditis [Recovered/Resolved]
